FAERS Safety Report 16521460 (Version 1)
Quarter: 2019Q3

REPORT INFORMATION
  Report Type: Spontaneous
  Country: ES (occurrence: ES)
  Receive Date: 20190702
  Receipt Date: 20190702
  Transmission Date: 20191004
  Serious: No
  Sender: FDA-Public Use
  Company Number: ES-JNJFOC-20190517347

PATIENT
  Sex: Female

DRUGS (3)
  1. FENTANYL. [Suspect]
     Active Substance: FENTANYL
     Indication: PRODUCT USED FOR UNKNOWN INDICATION
     Route: 062
  2. FENTANYL. [Suspect]
     Active Substance: FENTANYL
     Route: 062
  3. FENTANYL. [Suspect]
     Active Substance: FENTANYL
     Dosage: A PATCH OF 25 MG AND ANOTHER PATCH OF 50 MG
     Route: 062

REACTIONS (3)
  - Drug ineffective [Unknown]
  - Constipation [Not Recovered/Not Resolved]
  - Product complaint [Unknown]
